FAERS Safety Report 14227241 (Version 1)
Quarter: 2017Q4

REPORT INFORMATION
  Report Type: Spontaneous
  Country: US (occurrence: US)
  Receive Date: 20171127
  Receipt Date: 20171127
  Transmission Date: 20180321
  Serious: Yes (Hospitalization, Other)
  Sender: FDA-Public Use
  Company Number: US-MYLANLABS-2017M1073843

PATIENT
  Age: 47 Year
  Sex: Female

DRUGS (6)
  1. BUPROPION. [Interacting]
     Active Substance: BUPROPION
     Indication: PRODUCT USED FOR UNKNOWN INDICATION
     Dosage: 150 MG, BID
     Route: 065
  2. HYDROXYZINE [Interacting]
     Active Substance: HYDROXYZINE HYDROCHLORIDE
     Indication: PRODUCT USED FOR UNKNOWN INDICATION
     Dosage: 100 MG, TID
     Route: 065
  3. QUETIAPINE. [Suspect]
     Active Substance: QUETIAPINE
     Indication: PRODUCT USED FOR UNKNOWN INDICATION
     Dosage: 50 MG, TID
     Route: 065
  4. GABAPENTIN. [Interacting]
     Active Substance: GABAPENTIN
     Indication: PRODUCT USED FOR UNKNOWN INDICATION
     Dosage: 800 MG, TID
     Route: 065
  5. SCOPOLAMINE                        /00008701/ [Interacting]
     Active Substance: SCOPOLAMINE
     Indication: MOTION SICKNESS
     Dosage: UNK
     Route: 062
  6. TRAZODONE [Interacting]
     Active Substance: TRAZODONE HYDROCHLORIDE
     Indication: PRODUCT USED FOR UNKNOWN INDICATION
     Dosage: AT BEDTIME
     Route: 065

REACTIONS (14)
  - Mental status changes [Recovered/Resolved]
  - Hyperreflexia [Unknown]
  - Electrocardiogram QT prolonged [Recovered/Resolved]
  - Choreoathetosis [Unknown]
  - Orthostatic hypotension [Recovered/Resolved]
  - Urinary incontinence [Recovered/Resolved]
  - Dystonia [Unknown]
  - Anticholinergic syndrome [Unknown]
  - Mucosal dryness [Unknown]
  - Mydriasis [Unknown]
  - Drug interaction [Unknown]
  - Dysarthria [Unknown]
  - Peripheral coldness [Unknown]
  - Somnolence [Unknown]
